FAERS Safety Report 16112088 (Version 2)
Quarter: 2019Q2

REPORT INFORMATION
  Report Type: Spontaneous
  Country: BE (occurrence: BE)
  Receive Date: 20190325
  Receipt Date: 20190411
  Transmission Date: 20190711
  Serious: Yes (Hospitalization)
  Sender: FDA-Public Use
  Company Number: BE-BAYER-2019-054829

PATIENT
  Age: 52 Year
  Sex: Male
  Weight: 75 kg

DRUGS (8)
  1. AVONEX [Suspect]
     Active Substance: INTERFERON BETA-1A
     Indication: MULTIPLE SCLEROSIS
     Dosage: UNK
     Route: 030
  2. SIPRALEXA [Concomitant]
     Active Substance: ESCITALOPRAM OXALATE
     Dosage: 20 MG, UNK
  3. ASCORBIC ACID;VACCINIUM MACROCARPON [Concomitant]
     Dosage: 1 DF, QD
  4. AUBAGIO [Concomitant]
     Active Substance: TERIFLUNOMIDE
     Dosage: 14 MG, UNK
  5. BETAFERON [Suspect]
     Active Substance: INTERFERON BETA-1B
     Indication: MULTIPLE SCLEROSIS
     Route: 058
  6. LYRICA [Concomitant]
     Active Substance: PREGABALIN
     Dosage: 150 MG, UNK
  7. BETAFERON [Suspect]
     Active Substance: INTERFERON BETA-1B
     Indication: MULTIPLE SCLEROSIS
     Dosage: UNK
     Route: 058
  8. D-CURE [Concomitant]
     Active Substance: CHOLECALCIFEROL
     Dosage: 1 DF, UNK

REACTIONS (2)
  - Calcinosis [Recovered/Resolved with Sequelae]
  - Calcification of muscle [Recovered/Resolved with Sequelae]

NARRATIVE: CASE EVENT DATE: 20180601
